FAERS Safety Report 14660024 (Version 2)
Quarter: 2018Q2

REPORT INFORMATION
  Report Type: Spontaneous
  Country: CA (occurrence: CA)
  Receive Date: 20180320
  Receipt Date: 20180523
  Transmission Date: 20180711
  Serious: Yes (Hospitalization, Other)
  Sender: FDA-Public Use
  Company Number: CA-JNJFOC-20180324510

PATIENT
  Age: 43 Year
  Sex: Female

DRUGS (1)
  1. XARELTO [Suspect]
     Active Substance: RIVAROXABAN
     Indication: THROMBOSIS PROPHYLAXIS
     Route: 048

REACTIONS (11)
  - Diarrhoea [Unknown]
  - Pulmonary embolism [Unknown]
  - Dehydration [Unknown]
  - Acute kidney injury [Unknown]
  - Pneumatosis intestinalis [Unknown]
  - Hypotension [Unknown]
  - Urea cycle disorder [Unknown]
  - Deep vein thrombosis [Unknown]
  - Acute on chronic liver failure [Unknown]
  - Hepatic encephalopathy [Unknown]
  - Clostridium difficile infection [Recovering/Resolving]

NARRATIVE: CASE EVENT DATE: 20161103
